FAERS Safety Report 8271331-2 (Version None)
Quarter: 2012Q2

REPORT INFORMATION
  Report Type: 
  Country: None (occurrence: None)
  Receive Date: 20120410
  Receipt Date: 20120404
  Transmission Date: 20120825
  Serious: Yes (Hospitalization, Other)
  Sender: FDA-Public Use
  Company Number: US-BAYER-2012-014216

PATIENT
  Age: 56 Year
  Sex: Male
  Weight: 75 kg

DRUGS (2)
  1. BETASERON [Suspect]
     Indication: RELAPSING-REMITTING MULTIPLE SCLEROSIS
     Dosage: 0.25 MG, QOD
     Route: 058
     Dates: start: 20060101
  2. BETASERON [Suspect]
     Indication: SECONDARY PROGRESSIVE MULTIPLE SCLEROSIS

REACTIONS (3)
  - HYPERTENSION [None]
  - CAPILLARY LEAK SYNDROME [None]
  - ACUTE PULMONARY OEDEMA [None]
